FAERS Safety Report 23570108 (Version 5)
Quarter: 2024Q2

REPORT INFORMATION
  Report Type: Spontaneous
  Country: US (occurrence: US)
  Receive Date: 20240227
  Receipt Date: 20240416
  Transmission Date: 20240716
  Serious: Yes (Other)
  Sender: FDA-Public Use
  Company Number: US-ALKERMES INC.-ALK-2024-000389

PATIENT
  Age: 38 Year
  Sex: Male

DRUGS (3)
  1. VIVITROL [Suspect]
     Active Substance: NALTREXONE
     Indication: Alcohol use disorder
     Dosage: 380 MILLIGRAM, QMO
     Route: 030
     Dates: end: 20240202
  2. VIVITROL [Suspect]
     Active Substance: NALTREXONE
     Indication: Drug use disorder
  3. OXYCODONE [Suspect]
     Active Substance: OXYCODONE\OXYCODONE HYDROCHLORIDE
     Indication: Pain
     Dosage: UNK
     Route: 065
     Dates: start: 20240223

REACTIONS (6)
  - Loss of consciousness [Recovered/Resolved]
  - Ankle fracture [Recovering/Resolving]
  - Contraindicated product administered [Unknown]
  - Alcoholism [Unknown]
  - Pain [Recovering/Resolving]
  - Drug screen positive [Recovered/Resolved]

NARRATIVE: CASE EVENT DATE: 20240223
